FAERS Safety Report 12539078 (Version 1)
Quarter: 2016Q3

REPORT INFORMATION
  Report Type: Spontaneous
  Country: US (occurrence: None)
  Receive Date: 20160707
  Receipt Date: 20160707
  Transmission Date: 20161109
  Serious: Yes (Death)
  Sender: FDA-Public Use
  Company Number: None

PATIENT
  Age: 42 Year
  Sex: Male
  Weight: 117.94 kg

DRUGS (3)
  1. FLUOXETINE 40 MG, 40 MG TEVA PHARMACEUTICALS [Suspect]
     Active Substance: FLUOXETINE HYDROCHLORIDE
     Indication: OBSESSIVE-COMPULSIVE DISORDER
     Route: 048
  2. HERBAL SUPPLEMENTS [Concomitant]
  3. CPAP MACHINE [Concomitant]

REACTIONS (5)
  - Depression [None]
  - Completed suicide [None]
  - Social avoidant behaviour [None]
  - Fatigue [None]
  - Somnolence [None]

NARRATIVE: CASE EVENT DATE: 20160622
